FAERS Safety Report 21467084 (Version 2)
Quarter: 2022Q4

REPORT INFORMATION
  Report Type: Spontaneous
  Country: RU (occurrence: RU)
  Receive Date: 20221017
  Receipt Date: 20221024
  Transmission Date: 20230113
  Serious: Yes (Other)
  Sender: FDA-Public Use
  Company Number: RU-VIIV HEALTHCARE LIMITED-RU2022EME147127

PATIENT

DRUGS (3)
  1. ABACAVIR [Suspect]
     Active Substance: ABACAVIR
     Indication: HIV infection
     Dosage: UNK
  2. LAMIVUDINE [Suspect]
     Active Substance: LAMIVUDINE
     Indication: HIV infection
     Dosage: UNK
  3. ZIDOVUDINE [Suspect]
     Active Substance: ZIDOVUDINE
     Indication: HIV infection
     Dosage: UNK

REACTIONS (11)
  - T-cell type acute leukaemia [Unknown]
  - Haemorrhagic stroke [Unknown]
  - Cerebral ischaemia [Unknown]
  - Cerebrovascular accident [Unknown]
  - Drug ineffective [Unknown]
  - Lymphadenopathy [Unknown]
  - Hepatomegaly [Unknown]
  - Splenomegaly [Unknown]
  - Ecchymosis [Unknown]
  - Petechiae [Unknown]
  - Mediastinal disorder [Unknown]

NARRATIVE: CASE EVENT DATE: 20121101
